FAERS Safety Report 6564774-6 (Version None)
Quarter: 2010Q1

REPORT INFORMATION
  Report Type: 
  Country: None (occurrence: None)
  Receive Date: 20100201
  Receipt Date: 20100126
  Transmission Date: 20100710
  Serious: Yes (Hospitalization, Disabling)
  Sender: FDA-Public Use
  Company Number: JP-BAYER-200915407BYL

PATIENT
  Age: 74 Year
  Sex: Male
  Weight: 59 kg

DRUGS (15)
  1. NEXAVAR [Suspect]
     Indication: RENAL CELL CARCINOMA
     Dosage: UNIT DOSE: 200 MG
     Route: 048
     Dates: start: 20091127, end: 20091215
  2. VALSARTAN [Concomitant]
     Indication: HYPERTENSION
     Route: 048
     Dates: start: 20091111
  3. LOXONIN [Concomitant]
     Indication: CANCER PAIN
     Route: 048
     Dates: start: 20090101
  4. MUCOSTA [Concomitant]
     Indication: GASTRITIS PROPHYLAXIS
     Dosage: UNIT DOSE: 100 MG
     Route: 048
     Dates: start: 20090101
  5. DIOVAN [Concomitant]
     Indication: HYPERTENSION
     Dosage: UNIT DOSE: 80 MG
     Route: 048
     Dates: start: 20091111
  6. CELECOX [Concomitant]
     Indication: CANCER PAIN
     Dosage: UNIT DOSE: 100 MG
     Route: 048
     Dates: start: 20091119
  7. AMLODIN OD [Concomitant]
     Indication: HYPERTENSION
     Dosage: UNIT DOSE: 5 MG
     Route: 048
     Dates: start: 20091130
  8. MAGMITT [Concomitant]
     Indication: CONSTIPATION
     Dosage: UNIT DOSE: 250 MG
     Route: 048
     Dates: start: 20091204, end: 20091210
  9. MAGMITT [Concomitant]
     Dosage: UNIT DOSE: 250 MG
     Route: 048
  10. VOLTAREN [Concomitant]
     Indication: CANCER PAIN
     Route: 054
     Dates: start: 20091207, end: 20091208
  11. NOVAMIN [Concomitant]
     Indication: PROPHYLAXIS OF NAUSEA AND VOMITING
     Dosage: UNIT DOSE: 5 MG
     Route: 048
     Dates: start: 20091208
  12. PURSENNID [Concomitant]
     Indication: CONSTIPATION PROPHYLAXIS
     Dosage: UNIT DOSE: 12 MG
     Route: 048
     Dates: start: 20091208
  13. OXYCONTIN [Concomitant]
     Indication: CANCER PAIN
     Dosage: UNIT DOSE: 5 MG
     Route: 048
     Dates: start: 20091208
  14. OXINORM [Concomitant]
     Indication: CANCER PAIN
     Route: 048
     Dates: start: 20091208
  15. MINICA S [Concomitant]
     Indication: CONSTIPATION
     Route: 054
     Dates: start: 20091210, end: 20091210

REACTIONS (2)
  - RASH [None]
  - THYROIDITIS [None]
